FAERS Safety Report 4665305-8 (Version None)
Quarter: 2005Q2

REPORT INFORMATION
  Report Type: 
  Country: None (occurrence: None)
  Receive Date: 20050517
  Receipt Date: 20050504
  Transmission Date: 20051028
  Serious: Yes (Death, Life-Threatening, Other)
  Sender: FDA-Public Use
  Company Number: 2004106719

PATIENT
  Age: 56 Year
  Sex: Female
  Weight: 58.2872 kg

DRUGS (17)
  1. NEURONTIN [Suspect]
     Indication: NEUROPATHY PERIPHERAL
     Dosage: 1500 MG (300 MG, 5 IN 1 D),ORAL
     Route: 048
     Dates: start: 20010301
  2. DIPHENHYDRAMINE HCL [Suspect]
     Indication: ILL-DEFINED DISORDER
     Dosage: ORAL
     Route: 048
  3. METOPROLOL TARTRATE [Suspect]
     Indication: ILL-DEFINED DISORDER
     Dosage: 20 MG (1 IN 1 D)
  4. CARISOPRODOL [Suspect]
     Indication: ILL-DEFINED DISORDER
     Dosage: 350 MG, 1 OR 2 EVERY 4-6 HOURS AS NECESSARY, ORAL
     Route: 048
  5. MEPROBAMATE [Suspect]
     Indication: ILL-DEFINED DISORDER
  6. HYDROMORPHONE HYDROCHLORIDE [Suspect]
     Indication: ILL-DEFINED DISORDER
     Dosage: 4 MG, 1-2 EVERY 4-6 HOURS AS NECESSARY, ORAL
  7. PREDNISONE [Concomitant]
  8. FENTANYL [Concomitant]
  9. FELODIPINE [Concomitant]
  10. CLONIDINE [Concomitant]
  11. RAMIPRIL [Concomitant]
  12. POTASSIUM ACETATE [Concomitant]
  13. LANSOPRAZOLE [Concomitant]
  14. CLONAZEPAM [Concomitant]
  15. URSODIOL [Concomitant]
  16. STARLIX [Concomitant]
  17. LORZEPAM (LORAZEPAM) [Concomitant]

REACTIONS (5)
  - ABNORMAL BEHAVIOUR [None]
  - COMPLETED SUICIDE [None]
  - DEPRESSION [None]
  - DRUG INEFFECTIVE [None]
  - DRUG TOXICITY [None]
